FAERS Safety Report 18048903 (Version 2)
Quarter: 2020Q3

REPORT INFORMATION
  Report Type: Report from Study
  Country: CA (occurrence: CA)
  Receive Date: 20200721
  Receipt Date: 20200727
  Transmission Date: 20201103
  Serious: Yes (Other)
  Sender: FDA-Public Use
  Company Number: NVSC2020CA148102

PATIENT
  Age: 49 Year
  Sex: Male

DRUGS (3)
  1. AFINITOR [Suspect]
     Active Substance: EVEROLIMUS
     Dosage: UNK
     Route: 048
     Dates: start: 202007
  2. AFINITOR [Suspect]
     Active Substance: EVEROLIMUS
     Dosage: UNK
     Route: 048
     Dates: start: 201910
  3. AFINITOR [Suspect]
     Active Substance: EVEROLIMUS
     Indication: METASTATIC RENAL CELL CARCINOMA
     Dosage: 5 MG, QD
     Route: 048
     Dates: start: 201911, end: 202005

REACTIONS (8)
  - Malignant neoplasm progression [Unknown]
  - Haematochezia [Unknown]
  - Product dose omission issue [Unknown]
  - Pyrexia [Unknown]
  - Haematemesis [Unknown]
  - Feeling abnormal [Unknown]
  - Metastatic renal cell carcinoma [Unknown]
  - Malaise [Unknown]

NARRATIVE: CASE EVENT DATE: 20200716
